FAERS Safety Report 10018043 (Version 2)
Quarter: 2014Q1

REPORT INFORMATION
  Report Type: Spontaneous
  Country: US (occurrence: US)
  Receive Date: 20140318
  Receipt Date: 20140318
  Transmission Date: 20141002
  Serious: Yes (Other)
  Sender: FDA-Public Use
  Company Number: US-BRISTOL-MYERS SQUIBB COMPANY-18895367

PATIENT
  Age: 71 Year
  Sex: Male

DRUGS (1)
  1. ERBITUX [Suspect]
     Dosage: DOSES EVERY TUESDAY SINCE JANUARY.?LAST DOSE:07MAY2013

REACTIONS (4)
  - Rash [Unknown]
  - Alopecia [Unknown]
  - Dyspnoea [Unknown]
  - Hair growth abnormal [Unknown]
